FAERS Safety Report 8129003-0 (Version None)
Quarter: 2012Q1

REPORT INFORMATION
  Report Type: 
  Country: None (occurrence: None)
  Receive Date: 20120210
  Receipt Date: 20120131
  Transmission Date: 20120608
  Serious: Yes (Other)
  Sender: FDA-Public Use
  Company Number: JP-JNJFOC-20120202708

PATIENT

DRUGS (2)
  1. INFLIXIMAB, RECOMBINANT [Suspect]
     Indication: BEHCET'S SYNDROME
     Dosage: GIVEN AT 0, 2, 6 WEEK, THEREAFTER EVERY 8 WEEKS
     Route: 042
  2. INFLIXIMAB, RECOMBINANT [Suspect]
     Indication: UVEITIS
     Dosage: GIVEN AT 0, 2, 6 WEEK, THEREAFTER EVERY 8 WEEKS
     Route: 042

REACTIONS (1)
  - CYTOMEGALOVIRUS MONONUCLEOSIS [None]
